FAERS Safety Report 9005647 (Version 3)
Quarter: 2013Q1

REPORT INFORMATION
  Report Type: Spontaneous
  Country: US (occurrence: US)
  Receive Date: 20130109
  Receipt Date: 20130117
  Transmission Date: 20140127
  Serious: Yes (Death)
  Sender: FDA-Public Use
  Company Number: US-PFIZER INC-2013007795

PATIENT
  Age: 51 Year
  Sex: Female

DRUGS (5)
  1. DILTIAZEM HCL [Suspect]
     Route: 048
  2. DOFETILIDE [Suspect]
     Route: 048
  3. RAMIPRIL [Suspect]
     Route: 048
  4. CARVEDILOL [Suspect]
     Route: 048
  5. BUPROPION [Suspect]
     Route: 048

REACTIONS (1)
  - Completed suicide [Fatal]
